FAERS Safety Report 12729366 (Version 2)
Quarter: 2016Q3

REPORT INFORMATION
  Report Type: Spontaneous
  Country: CN (occurrence: CN)
  Receive Date: 20160909
  Receipt Date: 20160913
  Transmission Date: 20161109
  Serious: Yes (Hospitalization, Other)
  Sender: FDA-Public Use
  Company Number: CN-PFIZER INC-2016421859

PATIENT
  Age: 77 Year
  Sex: Male
  Weight: 69 kg

DRUGS (7)
  1. NORVASC [Suspect]
     Active Substance: AMLODIPINE BESYLATE
     Indication: HYPERTENSION
     Dosage: 5 MG, 1X/DAY
     Route: 048
     Dates: start: 20160525, end: 20160702
  2. MONTELUKAST SODIUM. [Concomitant]
     Active Substance: MONTELUKAST SODIUM
     Indication: COUGH
     Dosage: 10 MG, 1X/DAY
     Route: 048
     Dates: start: 20160525, end: 20160708
  3. RABEPRAZOLE SODIUM. [Concomitant]
     Active Substance: RABEPRAZOLE SODIUM
     Indication: DYSPEPSIA
     Dosage: 10 MG, 1X/DAY
     Route: 048
     Dates: start: 20160525, end: 20160708
  4. CANDESARTAN CILEXETIL. [Suspect]
     Active Substance: CANDESARTAN CILEXETIL
     Indication: HYPERTENSION
     Dosage: 8 MG, 1X/DAY
     Route: 048
     Dates: start: 20160525, end: 20160702
  5. BENZBROMARONE [Concomitant]
     Active Substance: BENZBROMARONE
     Indication: HYPERURICAEMIA
     Dosage: 50 MG, 1X/DAY
     Route: 048
     Dates: start: 20160525, end: 20160708
  6. RABEPRAZOLE SODIUM. [Concomitant]
     Active Substance: RABEPRAZOLE SODIUM
     Indication: ABDOMINAL PAIN
  7. DOXOFYLLINE [Concomitant]
     Active Substance: DOXOFYLLINE
     Indication: BRONCHIAL DISORDER
     Dosage: 0.2 G, QD
     Route: 048
     Dates: start: 20160525, end: 20160708

REACTIONS (5)
  - Dyspnoea [Unknown]
  - Condition aggravated [Unknown]
  - Productive cough [Unknown]
  - White blood cell count decreased [Recovering/Resolving]
  - Renal impairment [Recovering/Resolving]

NARRATIVE: CASE EVENT DATE: 201606
